FAERS Safety Report 5960409-1 (Version None)
Quarter: 2008Q4

REPORT INFORMATION
  Report Type: 
  Country: None (occurrence: None)
  Receive Date: 20081120
  Receipt Date: 20081107
  Transmission Date: 20090506
  Serious: Yes (Life-Threatening, Hospitalization, Disabling, Other)
  Sender: FDA-Public Use
  Company Number: US-ELI_LILLY_AND_COMPANY-US200811001835

PATIENT
  Sex: Female

DRUGS (1)
  1. CYMBALTA [Suspect]
     Dosage: 60 MG, 3/D
     Dates: start: 20060101

REACTIONS (6)
  - ASPIRATION [None]
  - DISABILITY [None]
  - GASTRIC BANDING [None]
  - OESOPHAGEAL RUPTURE [None]
  - OVERDOSE [None]
  - RESPIRATORY ARREST [None]
